FAERS Safety Report 4722202-7 (Version None)
Quarter: 2005Q3

REPORT INFORMATION
  Report Type: 
  Country: None (occurrence: None)
  Receive Date: 20050722
  Receipt Date: 20040830
  Transmission Date: 20060218
  Serious: Yes (Hospitalization)
  Sender: FDA-Public Use
  Company Number: US-GLAXOSMITHKLINE-A0524347A

PATIENT
  Age: 59 Year
  Sex: Female

DRUGS (8)
  1. AVANDIA [Suspect]
     Route: 048
     Dates: start: 20001115, end: 20030101
  2. GLUCOVANCE [Concomitant]
     Dosage: 2.5MG TWICE PER DAY
     Route: 048
  3. NORVASC [Concomitant]
     Dosage: 10MG PER DAY
     Route: 048
  4. TOPROL-XL [Concomitant]
     Dosage: 400MG PER DAY
     Route: 048
  5. AVALIDE [Concomitant]
     Dosage: 300MG PER DAY
     Route: 048
  6. ZOCOR [Concomitant]
     Dosage: 40MG PER DAY
     Route: 048
  7. ASPIRIN [Concomitant]
     Dosage: 325MG PER DAY
     Route: 048
  8. DILTIAZEM HCL [Concomitant]
     Dosage: 4MG AT NIGHT
     Route: 048

REACTIONS (1)
  - CARDIAC FAILURE CONGESTIVE [None]
